FAERS Safety Report 10451684 (Version 2)
Quarter: 2017Q4

REPORT INFORMATION
  Report Type: Spontaneous
  Country: DE (occurrence: DE)
  Receive Date: 20140915
  Receipt Date: 20171116
  Transmission Date: 20180320
  Serious: Yes (Other)
  Sender: FDA-Public Use
  Company Number: GXKR2014DE003454

PATIENT
  Sex: Female
  Weight: 46 kg

DRUGS (6)
  1. AMITRIPTYLINE ^NEURAXPHARM^ [Suspect]
     Active Substance: AMITRIPTYLINE
     Indication: DEPRESSION
     Dosage: 100 [MG/D ]
     Route: 048
  2. DOXEPIN [Suspect]
     Active Substance: DOXEPIN
     Indication: ANXIETY DISORDER
     Dosage: 50 [MG/D ]/ UNTIL AUGUST 2013
     Route: 048
  3. VENLAFAXIN DURA [Suspect]
     Active Substance: VENLAFAXINE HYDROCHLORIDE
     Indication: EATING DISORDER
     Dosage: 75 [MG/D ]
     Route: 048
     Dates: start: 20130127, end: 20130921
  4. VENLAFAXINE [Suspect]
     Active Substance: VENLAFAXINE HYDROCHLORIDE
     Indication: EATING DISORDER
     Dosage: 150 [MG/D ]
     Route: 048
     Dates: start: 20130127, end: 20130921
  5. AMITRIPTYLINE [Suspect]
     Active Substance: AMITRIPTYLINE
     Indication: DEPRESSION
     Dosage: 75 [MG/D ]
     Route: 048
     Dates: start: 20130127, end: 20130921
  6. ZELDOX [Suspect]
     Active Substance: ZIPRASIDONE
     Indication: SCHIZOPHRENIA
     Dosage: 60 [MG/D ]
     Route: 048
     Dates: start: 20130127, end: 20130921

REACTIONS (1)
  - Foetal monitoring abnormal [Recovered/Resolved]
